FAERS Safety Report 14597054 (Version 2)
Quarter: 2018Q1

REPORT INFORMATION
  Report Type: Spontaneous
  Country: IT (occurrence: IT)
  Receive Date: 20180305
  Receipt Date: 20180320
  Transmission Date: 20180509
  Serious: Yes (Hospitalization, Disabling, Other)
  Sender: FDA-Public Use
  Company Number: IT-ACCORD-063988

PATIENT
  Age: 8 Year
  Sex: Female
  Weight: 24.5 kg

DRUGS (2)
  1. LEVETIRACETAM. [Suspect]
     Active Substance: LEVETIRACETAM
     Indication: EPILEPSY
     Dosage: INCREASED TO 500 MG TWICE A DAY (40 MG/KG/DAY)
  2. TOPIRAMATE. [Suspect]
     Active Substance: TOPIRAMATE
     Indication: EPILEPSY
     Dosage: INITIAL DOSE OF 25 MG/D (1 MG/KG/DAY)

REACTIONS (4)
  - Paraesthesia [Recovered/Resolved]
  - Condition aggravated [Unknown]
  - Musculoskeletal stiffness [Recovered/Resolved]
  - Seizure [Unknown]
